FAERS Safety Report 5909742-X (Version None)
Quarter: 2008Q4

REPORT INFORMATION
  Report Type: 
  Country: None (occurrence: None)
  Receive Date: 20081002
  Receipt Date: 20080918
  Transmission Date: 20090506
  Serious: Yes (Hospitalization)
  Sender: FDA-Public Use
  Company Number: 2008002442

PATIENT
  Age: 57 Year
  Sex: Female

DRUGS (2)
  1. ERLOTINIB (ERLTONIB) (TABLET) (ERLOTINIB) [Suspect]
     Indication: GASTROINTESTINAL CARCINOMA
     Dosage: 150 MG, QD, ORAL
     Route: 048
     Dates: start: 20070829, end: 20080212
  2. BEVACIZUMAB (INJECTION FOR INFUSION) [Suspect]
     Indication: GASTROINTESTINAL CARCINOMA
     Dosage: 574 MG, Q2W, INTRAVENOUS
     Route: 042
     Dates: start: 20070829, end: 20080212

REACTIONS (1)
  - HAEMOGLOBIN DECREASED [None]
